FAERS Safety Report 18050304 (Version 1)
Quarter: 2020Q3

REPORT INFORMATION
  Report Type: Spontaneous
  Country: CN (occurrence: CN)
  Receive Date: 20200721
  Receipt Date: 20200721
  Transmission Date: 20201103
  Serious: Yes (Hospitalization)
  Sender: FDA-Public Use
  Company Number: CN-GLAXOSMITHKLINE-CN2020APC130021

PATIENT
  Age: 55 Year
  Sex: Female
  Weight: 64 kg

DRUGS (3)
  1. SERETIDE [Suspect]
     Active Substance: FLUTICASONE PROPIONATE\SALMETEROL XINAFOATE
     Indication: CHRONIC OBSTRUCTIVE PULMONARY DISEASE
     Dosage: 50 MG, BID
     Dates: start: 20200708, end: 20200710
  2. SERETIDE [Suspect]
     Active Substance: FLUTICASONE PROPIONATE\SALMETEROL XINAFOATE
     Indication: DYSPNOEA
  3. SERETIDE [Suspect]
     Active Substance: FLUTICASONE PROPIONATE\SALMETEROL XINAFOATE
     Indication: ASTHMA

REACTIONS (4)
  - Muscle spasms [Recovering/Resolving]
  - Pain in extremity [Recovering/Resolving]
  - Condition aggravated [Unknown]
  - Myalgia [Recovering/Resolving]

NARRATIVE: CASE EVENT DATE: 20200708
